FAERS Safety Report 6707912-4 (Version None)
Quarter: 2010Q2

REPORT INFORMATION
  Report Type: 
  Country: None (occurrence: None)
  Receive Date: 20100503
  Receipt Date: 20090303
  Transmission Date: 20101027
  Serious: No
  Sender: FDA-Public Use
  Company Number: US-ASTRAZENECA-2009SE11479

PATIENT
  Age: 52 Year
  Sex: Male

DRUGS (6)
  1. NEXIUM [Suspect]
     Indication: OESOPHAGITIS
     Dosage: 40 MG, 1 /DAY
     Route: 048
     Dates: start: 20090113
  2. NEXIUM [Suspect]
     Indication: DYSPHAGIA
     Dosage: 40 MG, 1 /DAY
     Route: 048
     Dates: start: 20090113
  3. NEXIUM [Suspect]
     Indication: NASAL CONGESTION
     Dosage: 40 MG, 1 /DAY
     Route: 048
     Dates: start: 20090113
  4. PRILOSEC OTC [Suspect]
     Dosage: 1 TABLET, 1 /DAY
     Route: 048
     Dates: start: 20090113
  5. AUGMENTIN '125' [Concomitant]
     Indication: SINUSITIS
     Dosage: 4000 MG, 2 /DAY
     Route: 048
  6. VITAMINS                           /90003601/ [Concomitant]

REACTIONS (2)
  - ABDOMINAL PAIN UPPER [None]
  - NASAL CONGESTION [None]
